FAERS Safety Report 7439386-2 (Version None)
Quarter: 2011Q2

REPORT INFORMATION
  Report Type: 
  Country: None (occurrence: None)
  Receive Date: 20110427
  Receipt Date: 20110403
  Transmission Date: 20111010
  Serious: Yes (Hospitalization, Other)
  Sender: FDA-Public Use
  Company Number: US-BAYER-201030083NA

PATIENT
  Age: 28 Year
  Sex: Female
  Weight: 63.492 kg

DRUGS (14)
  1. ALBUTEROL [Concomitant]
     Dosage: UNK
     Dates: start: 20040101, end: 20100101
  2. YASMIN [Suspect]
     Indication: PRODUCT USED FOR UNKNOWN INDICATION
     Dosage: UNK
     Route: 048
     Dates: start: 20030701, end: 20070801
  3. NASAREL [Concomitant]
     Dosage: UNK UNK, BID
     Route: 045
     Dates: start: 20070507, end: 20070811
  4. AMOXICILINA CLAV [Concomitant]
     Dosage: 125 MG, BID
     Route: 048
     Dates: start: 20070206
  5. CLIMARA [Concomitant]
     Dosage: 0.1 MG, UNK
     Route: 061
     Dates: start: 20070310
  6. NITROGLYCERIN [Concomitant]
     Indication: OESOPHAGEAL SPASM
     Dosage: UNK UNK, PRN
     Route: 060
     Dates: start: 20050919, end: 20100101
  7. IBUPROFEN [Concomitant]
     Indication: PAIN
     Dosage: 800 MG, TID
     Route: 048
     Dates: start: 20070712
  8. NEOMYCIN SULFATE/POLYMYXIN B SULFATE [Concomitant]
     Dosage: UNK UNK, QID
     Dates: start: 20070712, end: 20070811
  9. METRONIDAZOLE [Concomitant]
     Dosage: 500 MG, BID
     Route: 048
     Dates: start: 20070807
  10. DOXEPIN [Concomitant]
     Dosage: 10 MG, QD
     Route: 048
     Dates: start: 20070816, end: 20070818
  11. CIPROFLOXACIN [Concomitant]
     Dosage: 500 MG, BID
     Route: 048
     Dates: start: 20070807
  12. PREDNISONE [Concomitant]
     Dosage: 20 MG, UNK
     Route: 048
     Dates: start: 20070813, end: 20070821
  13. ACETAMINOPHEN AND HYDROCODONE BITARTRATE [Concomitant]
     Indication: PAIN
     Dosage: UNK UNK, PRN
     Route: 048
     Dates: start: 20070612
  14. MILK OF MAGNESIA TAB [Concomitant]
     Dosage: UNK UNK, QID
     Route: 048
     Dates: start: 20070809

REACTIONS (3)
  - DEEP VEIN THROMBOSIS [None]
  - GALLBLADDER DISORDER [None]
  - CHOLECYSTITIS CHRONIC [None]
